FAERS Safety Report 6942454-2 (Version None)
Quarter: 2010Q3

REPORT INFORMATION
  Report Type: 
  Country: None (occurrence: None)
  Receive Date: 20100826
  Receipt Date: 20100816
  Transmission Date: 20110219
  Serious: Yes (Hospitalization)
  Sender: FDA-Public Use
  Company Number: US-JNJFOC-20100508917

PATIENT
  Sex: Female

DRUGS (6)
  1. REMICADE [Suspect]
     Indication: CROHN'S DISEASE
     Route: 042
  2. REMICADE [Suspect]
     Route: 042
  3. IMURAN [Suspect]
     Indication: CROHN'S DISEASE
     Route: 065
  4. AMITRIPTYLINE HCL [Concomitant]
  5. RANITIDINE [Concomitant]
  6. DICYCLOMINE [Concomitant]

REACTIONS (7)
  - ABDOMINAL PAIN LOWER [None]
  - ABDOMINAL PAIN UPPER [None]
  - DYSPEPSIA [None]
  - LIPASE INCREASED [None]
  - MIGRAINE [None]
  - NAUSEA [None]
  - PANCREATITIS [None]
